FAERS Safety Report 10798390 (Version 1)
Quarter: 2015Q1

REPORT INFORMATION
  Report Type: Report from Study
  Country: BR (occurrence: BR)
  Receive Date: 20150216
  Receipt Date: 20150216
  Transmission Date: 20150721
  Serious: Yes (Other)
  Sender: FDA-Public Use
  Company Number: PHHY2015BR011250

PATIENT
  Sex: Female
  Weight: 100 kg

DRUGS (7)
  1. PARACETAMOL FORTBENTON [Concomitant]
     Indication: PAIN
     Dosage: 1 DF, EACH 6 HOURS
     Route: 048
  2. VITAMIN D [Concomitant]
     Active Substance: CHOLECALCIFEROL
     Indication: HYPOVITAMINOSIS
     Dosage: 50 DRP, EACH 7 DAYS
     Route: 048
  3. SANDOSTATIN LAR DEPOT [Suspect]
     Active Substance: OCTREOTIDE ACETATE
     Dosage: 1 DF (30 MG), EACH 28 DAYS
     Route: 030
     Dates: start: 2010, end: 201403
  4. CODEINE PHOSPHATE [Concomitant]
     Active Substance: CODEINE PHOSPHATE
     Indication: PAIN
     Dosage: 1 DF, EACH 8 HOURS
     Route: 048
  5. SANDOSTATIN LAR DEPOT [Suspect]
     Active Substance: OCTREOTIDE ACETATE
     Indication: PITUITARY TUMOUR
     Dosage: 1 DF (30 MG), EACH 28 DAYS
     Route: 030
     Dates: start: 2007
  6. SANDOSTATIN LAR DEPOT [Suspect]
     Active Substance: OCTREOTIDE ACETATE
     Dosage: 1 DF (20 MG), EACH 28 DAYS
     Route: 030
     Dates: start: 2010, end: 201403
  7. SANDOSTATIN LAR DEPOT [Suspect]
     Active Substance: OCTREOTIDE ACETATE
     Dosage: 1 DF (30 MG), EACH 28 DAYS
     Route: 030
     Dates: start: 201411

REACTIONS (3)
  - Overweight [Recovering/Resolving]
  - Anaemia [Recovering/Resolving]
  - Depression [Recovering/Resolving]
